FAERS Safety Report 5588678-0 (Version None)
Quarter: 2008Q1

REPORT INFORMATION
  Report Type: 
  Country: None (occurrence: None)
  Receive Date: 20080111
  Receipt Date: 20080103
  Transmission Date: 20080703
  Serious: Yes (Other)
  Sender: FDA-Public Use
  Company Number: CH-PFIZER INC-2007101281

PATIENT
  Sex: Male
  Weight: 70 kg

DRUGS (3)
  1. ZYVOX [Suspect]
     Indication: ENDOCARDITIS
     Route: 042
  2. GENTAMICIN [Concomitant]
     Route: 042
     Dates: start: 20071102, end: 20071206
  3. RIFAMPICIN [Concomitant]
     Route: 042
     Dates: start: 20071102, end: 20071214

REACTIONS (1)
  - CATHETER RELATED COMPLICATION [None]
